FAERS Safety Report 20507843 (Version 14)
Quarter: 2024Q1

REPORT INFORMATION
  Report Type: Spontaneous
  Country: US (occurrence: US)
  Receive Date: 20220223
  Receipt Date: 20240115
  Transmission Date: 20240410
  Serious: Yes (Other)
  Sender: FDA-Public Use
  Company Number: US-GSKCCFUS-Case-01299558_AE-75724

PATIENT

DRUGS (1)
  1. SOTROVIMAB [Suspect]
     Active Substance: SOTROVIMAB
     Indication: COVID-19
     Dosage: 500 MG
     Route: 042
     Dates: start: 20220211

REACTIONS (36)
  - Haematochezia [Unknown]
  - Bipolar I disorder [Not Recovered/Not Resolved]
  - Gastritis erosive [Unknown]
  - Parasitic gastroenteritis [Unknown]
  - Lung disorder [Unknown]
  - Secretion discharge [Not Recovered/Not Resolved]
  - Pyrexia [Not Recovered/Not Resolved]
  - Hypertension [Not Recovered/Not Resolved]
  - Tachycardia [Not Recovered/Not Resolved]
  - Ocular hyperaemia [Not Recovered/Not Resolved]
  - Feeling hot [Not Recovered/Not Resolved]
  - Pressure of speech [Not Recovered/Not Resolved]
  - Headache [Not Recovered/Not Resolved]
  - Constipation [Not Recovered/Not Resolved]
  - Nausea [Not Recovered/Not Resolved]
  - Tongue coated [Not Recovered/Not Resolved]
  - Feeding disorder [Not Recovered/Not Resolved]
  - Weight decreased [Not Recovered/Not Resolved]
  - Immune system disorder [Not Recovered/Not Resolved]
  - Chills [Recovered/Resolved]
  - Abdominal pain upper [Unknown]
  - Discharge [Unknown]
  - Anal pruritus [Unknown]
  - Infection parasitic [Unknown]
  - Anxiety [Not Recovered/Not Resolved]
  - Delusion of grandeur [Not Recovered/Not Resolved]
  - Eye disorder [Unknown]
  - Eyelid disorder [Unknown]
  - Bite [Unknown]
  - Parosmia [Unknown]
  - Photosensitivity reaction [Unknown]
  - Pharyngeal erosion [Unknown]
  - Cystitis [Not Recovered/Not Resolved]
  - Feeling abnormal [Unknown]
  - Tooth discolouration [Unknown]
  - Product prescribing issue [Unknown]

NARRATIVE: CASE EVENT DATE: 20220201
